FAERS Safety Report 8469277-X (Version None)
Quarter: 2012Q2

REPORT INFORMATION
  Report Type: 
  Country: None (occurrence: None)
  Receive Date: 20120626
  Receipt Date: 20120620
  Transmission Date: 20120825
  Serious: Yes (Disabling)
  Sender: FDA-Public Use
  Company Number: GB-ELI_LILLY_AND_COMPANY-GB201206006734

PATIENT
  Age: 47 Year
  Sex: Male
  Weight: 111 kg

DRUGS (6)
  1. NITROGLYCERIN [Concomitant]
     Dosage: 400 UG, PRN
  2. BISOPROLOL FUMARATE [Concomitant]
     Dosage: 5 MG, QD
  3. ISOSORBIDE MONONITRATE [Concomitant]
     Dosage: 60 MG, QD
  4. ASPIRIN [Concomitant]
     Dosage: 75 MG, QD
  5. SIMVASTATIN [Concomitant]
     Dosage: 40 MG, QD
  6. EFFIENT [Suspect]
     Dosage: 10 MG, QD
     Route: 048
     Dates: start: 20120523, end: 20120530

REACTIONS (3)
  - PAIN IN EXTREMITY [None]
  - OEDEMA [None]
  - MUSCULOSKELETAL STIFFNESS [None]
